FAERS Safety Report 9070709 (Version 1)
Quarter: 2013Q1

REPORT INFORMATION
  Report Type: Spontaneous
  Country: US (occurrence: US)
  Receive Date: 20130129
  Receipt Date: 20130129
  Transmission Date: 20140127
  Serious: No
  Sender: FDA-Public Use
  Company Number: US-ABBOTT-12P-163-0924707-00

PATIENT
  Age: 56 None
  Sex: Male
  Weight: 86.26 kg

DRUGS (4)
  1. HUMIRA 40 MG/0.8 ML PEN [Suspect]
     Indication: PSORIASIS
     Dosage: 1ST LOADING DOSE, ONCE
     Route: 058
     Dates: start: 201203, end: 201203
  2. HUMIRA 40 MG/0.8 ML PEN [Suspect]
     Route: 058
     Dates: start: 201203
  3. LISINOPRIL [Concomitant]
     Indication: HYPERTENSION
  4. METHOTREXATE [Concomitant]
     Indication: PSORIASIS
     Route: 048

REACTIONS (3)
  - Injection site swelling [Recovering/Resolving]
  - Injection site haemorrhage [Recovered/Resolved]
  - Local swelling [Recovered/Resolved]
